FAERS Safety Report 9886702 (Version 1)
Quarter: 2014Q1

REPORT INFORMATION
  Report Type: Spontaneous
  Country: CA (occurrence: CA)
  Receive Date: 20140210
  Receipt Date: 20140210
  Transmission Date: 20141002
  Serious: Yes (Hospitalization, Other)
  Sender: FDA-Public Use
  Company Number: CA-009507513-1402CAN002648

PATIENT
  Age: 13 Year
  Sex: Female
  Weight: 57 kg

DRUGS (3)
  1. NITROGLYCERIN [Suspect]
     Dosage: UNK
     Route: 062
  2. NITROGLYCERIN [Suspect]
     Dosage: 2 MICROGRAM, 1 EVERY MINUTE
     Route: 065
  3. EPINEPHRINE [Suspect]
     Dosage: 0.18 MG/KG, UNK
     Route: 058

REACTIONS (9)
  - Cardiac failure [Recovered/Resolved]
  - Accidental overdose [Recovered/Resolved]
  - Acute pulmonary oedema [Recovered/Resolved]
  - Hypertension [Recovered/Resolved]
  - Hypotension [Recovered/Resolved]
  - Myocardial ischaemia [Recovered/Resolved]
  - Sinus tachycardia [Recovered/Resolved]
  - Supraventricular tachycardia [Recovered/Resolved]
  - Wrong drug administered [Recovered/Resolved]
